FAERS Safety Report 15275365 (Version 2)
Quarter: 2018Q3

REPORT INFORMATION
  Report Type: Spontaneous
  Country: VN (occurrence: VN)
  Receive Date: 20180814
  Receipt Date: 20180828
  Transmission Date: 20181010
  Serious: Yes (Death, Other)
  Sender: FDA-Public Use
  Company Number: VN-INCYTE CORPORATION-2018IN007900

PATIENT

DRUGS (1)
  1. JAKAVI [Suspect]
     Active Substance: RUXOLITINIB
     Indication: MYELOFIBROSIS
     Dosage: 30 MG, QD
     Route: 048
     Dates: start: 20180705, end: 20180731

REACTIONS (3)
  - Coagulopathy [Unknown]
  - Renal failure [Unknown]
  - Myelofibrosis [Fatal]

NARRATIVE: CASE EVENT DATE: 20180730
